FAERS Safety Report 9031065 (Version 1)
Quarter: 2013Q1

REPORT INFORMATION
  Report Type: Spontaneous
  Country: US (occurrence: US)
  Receive Date: 20130123
  Receipt Date: 20130123
  Transmission Date: 20140127
  Serious: No
  Sender: FDA-Public Use
  Company Number: US-009507513-1301USA009527

PATIENT
  Age: 42 Year
  Sex: Female

DRUGS (1)
  1. IMPLANON [Suspect]
     Indication: CONTRACEPTION
     Dosage: UNK,EVERY 3 YEARS
     Route: 059
     Dates: start: 20100111

REACTIONS (2)
  - Pain in extremity [Unknown]
  - Incorrect drug administration duration [Unknown]
